FAERS Safety Report 5893111-5 (Version None)
Quarter: 2008Q3

REPORT INFORMATION
  Report Type: 
  Country: None (occurrence: None)
  Receive Date: 20080922
  Receipt Date: 20080922
  Transmission Date: 20090109
  Serious: Yes (Life-Threatening, Hospitalization, Disabling, Other)
  Sender: FDA-Public Use
  Company Number: None

PATIENT
  Age: 23 Year
  Sex: Female
  Weight: 47.1741 kg

DRUGS (1)
  1. ABILIFY [Suspect]
     Dosage: DAILY

REACTIONS (2)
  - INSOMNIA [None]
  - PARKINSON'S DISEASE [None]
